FAERS Safety Report 24595814 (Version 2)
Quarter: 2024Q4

REPORT INFORMATION
  Report Type: Report from Study
  Country: FR (occurrence: FR)
  Receive Date: 20241109
  Receipt Date: 20241119
  Transmission Date: 20250115
  Serious: Yes (Other)
  Sender: UCB
  Company Number: FR-UCBSA-2024050718

PATIENT
  Sex: Female
  Weight: 130 kg

DRUGS (2)
  1. ZILUCOPLAN [Suspect]
     Active Substance: ZILUCOPLAN
     Indication: Myasthenia gravis
     Dosage: 32.4 MILLIGRAM, ONCE DAILY (QD)
     Route: 058
     Dates: start: 20240717
  2. AZATHIOPRINE [Concomitant]
     Active Substance: AZATHIOPRINE
     Indication: Muscular weakness
     Dosage: UNK

REACTIONS (3)
  - Hepatitis E [Unknown]
  - Hepatitis C [Unknown]
  - Migraine [Unknown]

NARRATIVE: CASE EVENT DATE: 20240101
